FAERS Safety Report 25961235 (Version 1)
Quarter: 2025Q4

REPORT INFORMATION
  Report Type: Report from Study
  Country: US (occurrence: US)
  Receive Date: 20251027
  Receipt Date: 20251027
  Transmission Date: 20260118
  Serious: No
  Sender: ACADIA PHARMACEUTICALS
  Company Number: US-ACADIA PHARMACEUTICALS INC.-ACA-2025-PIM-011414

PATIENT
  Age: 62 Year
  Sex: Male

DRUGS (19)
  1. NUPLAZID [Suspect]
     Active Substance: PIMAVANSERIN TARTRATE
     Indication: Parkinson^s disease
     Dosage: 34 MILLIGRAM, QD
     Route: 048
     Dates: start: 20250111
  2. MEMANTINE [Concomitant]
     Active Substance: MEMANTINE
  3. RISPERIDONE [Concomitant]
     Active Substance: RISPERIDONE
  4. TOPIRAMATE [Concomitant]
     Active Substance: TOPIRAMATE
  5. QUETIAPINE [Concomitant]
     Active Substance: QUETIAPINE
  6. CARBIDOPA\LEVODOPA [Concomitant]
     Active Substance: CARBIDOPA\LEVODOPA
  7. ONDANSETRON [Concomitant]
     Active Substance: ONDANSETRON
  8. ATORVASTATIN [Concomitant]
     Active Substance: ATORVASTATIN
  9. MECLIZINE HYDROCHLORIDE [Concomitant]
     Active Substance: MECLIZINE HYDROCHLORIDE
  10. SERTRALINE [Concomitant]
     Active Substance: SERTRALINE HYDROCHLORIDE
  11. JARDIANCE [Concomitant]
     Active Substance: EMPAGLIFLOZIN
  12. PANTOPRAZOLE [Concomitant]
     Active Substance: PANTOPRAZOLE
  13. METOPROLOL [Concomitant]
     Active Substance: METOPROLOL
  14. LEVOTHYROXINE [Concomitant]
     Active Substance: LEVOTHYROXINE
  15. FAMOTIDINE [Concomitant]
     Active Substance: FAMOTIDINE
  16. METFORMIN [Concomitant]
     Active Substance: METFORMIN HYDROCHLORIDE
  17. VALPROIC ACID [Concomitant]
     Active Substance: VALPROIC ACID
  18. DONEPEZIL [Concomitant]
     Active Substance: DONEPEZIL
  19. ALPRAZOLAM [Concomitant]
     Active Substance: ALPRAZOLAM

REACTIONS (1)
  - Aggression [Not Recovered/Not Resolved]

NARRATIVE: CASE EVENT DATE: 20250922
